FAERS Safety Report 14587790 (Version 5)
Quarter: 2018Q2

REPORT INFORMATION
  Report Type: Report from Study
  Country: CA (occurrence: CA)
  Receive Date: 20180301
  Receipt Date: 20180410
  Transmission Date: 20180711
  Serious: Yes (Hospitalization)
  Sender: FDA-Public Use
  Company Number: CA-JNJFOC-20180218082

PATIENT
  Age: 46 Year
  Sex: Male

DRUGS (7)
  1. SIMPONI [Suspect]
     Active Substance: GOLIMUMAB
     Indication: ANKYLOSING SPONDYLITIS
     Route: 058
     Dates: start: 20150417
  2. SIMPONI [Suspect]
     Active Substance: GOLIMUMAB
     Indication: ANKYLOSING SPONDYLITIS
     Route: 058
     Dates: start: 20150330, end: 20180312
  3. METOPROLOL. [Suspect]
     Active Substance: METOPROLOL
     Indication: TACHYCARDIA
     Route: 065
     Dates: start: 2018
  4. SIMPONI [Suspect]
     Active Substance: GOLIMUMAB
     Indication: ANKYLOSING SPONDYLITIS
     Route: 058
     Dates: start: 20180217
  5. SIMPONI [Suspect]
     Active Substance: GOLIMUMAB
     Indication: ANKYLOSING SPONDYLITIS
     Route: 058
     Dates: start: 20150507
  6. SIMPONI [Suspect]
     Active Substance: GOLIMUMAB
     Indication: ANKYLOSING SPONDYLITIS
     Dosage: STRENGTH = 50 MG
     Route: 058
     Dates: start: 20160223
  7. METOPROLOL. [Suspect]
     Active Substance: METOPROLOL
     Indication: TACHYCARDIA
     Route: 065
     Dates: start: 2018

REACTIONS (8)
  - Chronic obstructive pulmonary disease [Recovering/Resolving]
  - Tachycardia [Recovering/Resolving]
  - Off label use [Unknown]
  - Product use issue [Unknown]
  - Iritis [Unknown]
  - Drug ineffective [Unknown]
  - Dizziness [Recovering/Resolving]
  - Bronchitis viral [Recovered/Resolved]

NARRATIVE: CASE EVENT DATE: 20150330
